FAERS Safety Report 4994001-2 (Version None)
Quarter: 2006Q2

REPORT INFORMATION
  Report Type: 
  Country: None (occurrence: None)
  Receive Date: 20060503
  Receipt Date: 20060424
  Transmission Date: 20061013
  Serious: Yes (Hospitalization)
  Sender: FDA-Public Use
  Company Number: GXKR2006NL02111

PATIENT
  Age: 73 Year
  Sex: Male

DRUGS (4)
  1. CIPROFLOXACIN [Suspect]
     Indication: SYSTEMIC ANTIBACTERIAL THERAPY
  2. METRONIDAZOLE [Suspect]
     Indication: SYSTEMIC ANTIBACTERIAL THERAPY
     Dosage: 500 MG, TID, ORAL
     Route: 048
  3. TOBRAMYCIN [Suspect]
     Indication: SYSTEMIC ANTIBACTERIAL THERAPY
  4. FLUCONAZOLE [Suspect]
     Indication: SYSTEMIC ANTIBACTERIAL THERAPY

REACTIONS (2)
  - ACUTE RESPIRATORY FAILURE [None]
  - CLOSTRIDIUM COLITIS [None]
